FAERS Safety Report 4539973-5 (Version None)
Quarter: 2004Q4

REPORT INFORMATION
  Report Type: 
  Country: None (occurrence: None)
  Receive Date: 20041223
  Receipt Date: 20041210
  Transmission Date: 20050328
  Serious: Yes (Other)
  Sender: FDA-Public Use
  Company Number: 2004109666

PATIENT
  Age: 52 Year
  Sex: Male
  Weight: 158.759 kg

DRUGS (6)
  1. CELEBREX [Suspect]
     Indication: ARTHRITIS
     Dosage: (1 D)
     Dates: start: 20020101
  2. LISINOPRIL [Concomitant]
  3. FUROSEMIDE [Concomitant]
  4. HYDROCODONE (HYDROCODONE) [Concomitant]
  5. HYOSCYAMINE (HYOSCYAMINE) [Concomitant]
  6. ROFECOXIB [Concomitant]

REACTIONS (3)
  - GLAUCOMA [None]
  - JOINT RANGE OF MOTION DECREASED [None]
  - PAIN [None]
